FAERS Safety Report 7543033-9 (Version None)
Quarter: 2011Q2

REPORT INFORMATION
  Report Type: 
  Country: None (occurrence: None)
  Receive Date: 20110613
  Receipt Date: 20110606
  Transmission Date: 20111010
  Serious: Yes (Hospitalization)
  Sender: FDA-Public Use
  Company Number: PHHO2011NL09642

PATIENT
  Sex: Male
  Weight: 178 kg

DRUGS (2)
  1. MYCOPHENOLIC ACID [Suspect]
     Indication: STEM CELL TRANSPLANT
     Dosage: 2160 MG, UNK
     Route: 048
     Dates: start: 20110512
  2. SANDIMMUNE [Suspect]
     Indication: STEM CELL TRANSPLANT
     Dosage: 400 MG, UNK
     Route: 048
     Dates: start: 20110509

REACTIONS (1)
  - FEBRILE NEUTROPENIA [None]
